FAERS Safety Report 5209093-5 (Version None)
Quarter: 2007Q1

REPORT INFORMATION
  Report Type: 
  Country: None (occurrence: None)
  Receive Date: 20070111
  Receipt Date: 20070103
  Transmission Date: 20070707
  Serious: Yes (Other)
  Sender: FDA-Public Use
  Company Number: CHNY2006AU02999

PATIENT
  Sex: Male

DRUGS (1)
  1. ALPHARMA                  QUITX [Suspect]
     Dosage: TRANSDERMAL
     Route: 062

REACTIONS (6)
  - APPLICATION SITE BLEEDING [None]
  - APPLICATION SITE VESICLES [None]
  - BLOOD BLISTER [None]
  - SCAB [None]
  - SCAR [None]
  - SKIN DISCOLOURATION [None]
